FAERS Safety Report 14010932 (Version 1)
Quarter: 2017Q3

REPORT INFORMATION
  Report Type: Spontaneous
  Country: US (occurrence: US)
  Receive Date: 20170926
  Receipt Date: 20170926
  Transmission Date: 20171128
  Serious: No
  Sender: FDA-Public Use
  Company Number: US-PFIZER INC-2017411288

PATIENT
  Sex: Male

DRUGS (1)
  1. ADVIL [Suspect]
     Active Substance: IBUPROFEN

REACTIONS (4)
  - Suspected counterfeit product [Unknown]
  - Oral discomfort [Unknown]
  - Intentional product misuse [Unknown]
  - Product taste abnormal [Unknown]
